FAERS Safety Report 7000156-0 (Version None)
Quarter: 2010Q3

REPORT INFORMATION
  Report Type: 
  Country: None (occurrence: None)
  Receive Date: 20100920
  Receipt Date: 20100617
  Transmission Date: 20110219
  Serious: No
  Sender: FDA-Public Use
  Company Number: US-ASTRAZENECA-2010SE28506

PATIENT
  Age: 55 Year
  Sex: Female

DRUGS (9)
  1. SEROQUEL XR [Suspect]
     Indication: BIPOLAR I DISORDER
     Route: 048
     Dates: start: 20100517
  2. LISINOPRIL [Concomitant]
  3. ISOSORBIDE [Concomitant]
  4. PRAVASTATIN [Concomitant]
  5. LEVOTHYROXINE [Concomitant]
  6. CYMBALTA [Concomitant]
  7. ALLEGRA [Concomitant]
  8. ESTRADIOL [Concomitant]
  9. ZOLPIDEM [Concomitant]

REACTIONS (1)
  - DRY EYE [None]
